FAERS Safety Report 7392760-5 (Version None)
Quarter: 2011Q1

REPORT INFORMATION
  Report Type: 
  Country: None (occurrence: None)
  Receive Date: 20110330
  Receipt Date: 20110330
  Transmission Date: 20110831
  Serious: Yes (Other)
  Sender: FDA-Public Use
  Company Number: None

PATIENT
  Age: 65 Year
  Sex: Male
  Weight: 69.4003 kg

DRUGS (1)
  1. OXYCODONE AND ACETAMINOPHEN [Suspect]
     Indication: PROCEDURAL PAIN
     Dosage: 325 MG 1-2 TAB 4-6 HR PO
     Route: 048
     Dates: start: 20110307, end: 20110308

REACTIONS (3)
  - SKIN EXFOLIATION [None]
  - OEDEMA PERIPHERAL [None]
  - RASH [None]
